FAERS Safety Report 8073008-5 (Version None)
Quarter: 2012Q1

REPORT INFORMATION
  Report Type: 
  Country: None (occurrence: None)
  Receive Date: 20120120
  Receipt Date: 20120104
  Transmission Date: 20120608
  Serious: Yes (Death)
  Sender: FDA-Public Use
  Company Number: 1157275

PATIENT
  Age: 22 Year
  Sex: Male

DRUGS (2)
  1. METOPROLOL TARTRATE [Suspect]
     Dosage: NOT REPORTED UNKNOWN
  2. METHAMPHETAMINE HYDROCHLORIDE [Suspect]

REACTIONS (2)
  - DRUG ABUSE [None]
  - POISONING [None]
